FAERS Safety Report 8410243-8 (Version None)
Quarter: 2012Q2

REPORT INFORMATION
  Report Type: 
  Country: None (occurrence: None)
  Receive Date: 20120605
  Receipt Date: 20120531
  Transmission Date: 20120825
  Serious: Yes (Other)
  Sender: FDA-Public Use
  Company Number: PHHY2012CA023422

PATIENT
  Sex: Female

DRUGS (1)
  1. GILENYA [Suspect]
     Indication: RELAPSING-REMITTING MULTIPLE SCLEROSIS
     Dosage: 0.5 MG, QD
     Route: 048
     Dates: start: 20111209

REACTIONS (13)
  - PAIN IN EXTREMITY [None]
  - CRYING [None]
  - ABDOMINAL DISCOMFORT [None]
  - WEIGHT DECREASED [None]
  - CONVULSION [None]
  - MALAISE [None]
  - CHEST PAIN [None]
  - FEELING ABNORMAL [None]
  - BACK PAIN [None]
  - PYREXIA [None]
  - BIPOLAR DISORDER [None]
  - GASTROENTERITIS [None]
  - DEPRESSION [None]
